FAERS Safety Report 15567261 (Version 1)
Quarter: 2018Q4

REPORT INFORMATION
  Report Type: Spontaneous
  Country: US (occurrence: US)
  Receive Date: 20181030
  Receipt Date: 20181030
  Transmission Date: 20190205
  Serious: Yes (Other)
  Sender: FDA-Public Use
  Company Number: US-LANNETT COMPANY, INC.-US-2018LAN001266

PATIENT
  Age: 51 Year
  Sex: Female

DRUGS (3)
  1. NEOMYCIN SULFATE. [Suspect]
     Active Substance: NEOMYCIN SULFATE
     Indication: PRODUCT USED FOR UNKNOWN INDICATION
     Dosage: UNK
     Route: 065
  2. DTAP VACCINE [Suspect]
     Active Substance: DIPHTHERIA AND TETANUS TOXOIDS AND ACELLULAR PERTUSSIS VACCINE ADSORBED
     Indication: IMMUNISATION
     Dosage: UNK
     Route: 058
  3. PNEUMOVAX 23 [Suspect]
     Active Substance: PNEUMOCOCCAL VACCINE, POLYVALENT 23
     Indication: IMMUNISATION
     Dosage: UNK
     Route: 058

REACTIONS (3)
  - Type IV hypersensitivity reaction [Unknown]
  - Vaccination site ulcer [Unknown]
  - Vaccination site necrosis [Unknown]
